FAERS Safety Report 9460825 (Version 3)
Quarter: 2013Q3

REPORT INFORMATION
  Report Type: Spontaneous
  Country: JP (occurrence: JP)
  Receive Date: 20130815
  Receipt Date: 20130828
  Transmission Date: 20140515
  Serious: Yes (Hospitalization, Other)
  Sender: FDA-Public Use
  Company Number: JP-JNJFOC-20130805955

PATIENT
  Age: 81 Year
  Sex: Male

DRUGS (2)
  1. ZYRTEC [Suspect]
     Indication: ECZEMA ASTEATOTIC
     Dosage: OFF LABEL USE FOR DOSE
     Route: 048
     Dates: start: 2013
  2. ZYRTEC [Suspect]
     Indication: ECZEMA ASTEATOTIC
     Dosage: OFF LABEL USE FOR DOSE
     Route: 048
     Dates: start: 20070629

REACTIONS (2)
  - Accidental overdose [Unknown]
  - Accidental exposure to product [Unknown]
